FAERS Safety Report 9543022 (Version 2)
Quarter: 2013Q4

REPORT INFORMATION
  Report Type: Report from Study
  Country: US (occurrence: US)
  Receive Date: 20130923
  Receipt Date: 20131008
  Transmission Date: 20140711
  Serious: Yes (Hospitalization)
  Sender: FDA-Public Use
  Company Number: US-ROCHE-1272217

PATIENT
  Age: 54 Year
  Sex: Male
  Weight: 83.5 kg

DRUGS (2)
  1. VISMODEGIB [Suspect]
     Indication: PANCREATIC CARCINOMA
     Dosage: DATE OF LAST DOSE PRIOR TO SAE: 21/AUG/2013
     Route: 048
     Dates: start: 20130725, end: 20130831
  2. SIROLIMUS [Suspect]
     Indication: PANCREATIC CARCINOMA
     Dosage: DATE OF LAST DOSE PRIOR TO SAE: 21/AUG/2013
     Route: 048
     Dates: start: 20130725, end: 20130831

REACTIONS (3)
  - Colitis [Unknown]
  - Infection [Unknown]
  - Dehydration [Unknown]
